FAERS Safety Report 6878368-6 (Version None)
Quarter: 2010Q3

REPORT INFORMATION
  Report Type: 
  Country: None (occurrence: None)
  Receive Date: 20100728
  Receipt Date: 20100720
  Transmission Date: 20110219
  Serious: Yes (Other)
  Sender: FDA-Public Use
  Company Number: JP-JNJFOC-20100603307

PATIENT
  Age: 73 Year
  Sex: Male

DRUGS (4)
  1. ITRIZOLE [Suspect]
     Indication: ONYCHOMYCOSIS
     Route: 048
  2. ITRIZOLE [Suspect]
     Route: 048
  3. ASPIRIN [Concomitant]
     Route: 065
  4. ALL OTHER THERAPEUTIC PRODUCT [Concomitant]
     Route: 065

REACTIONS (2)
  - BLOOD GLUCOSE INCREASED [None]
  - SLUGGISHNESS [None]
